FAERS Safety Report 20875573 (Version 2)
Quarter: 2022Q2

REPORT INFORMATION
  Report Type: Spontaneous
  Country: IT (occurrence: IT)
  Receive Date: 20220526
  Receipt Date: 20220606
  Transmission Date: 20220721
  Serious: Yes (Other)
  Sender: FDA-Public Use
  Company Number: IT-PHARMAMAR-2022PM000193

PATIENT
  Age: 20 Year
  Sex: Male

DRUGS (14)
  1. IRINOTECAN [Suspect]
     Active Substance: IRINOTECAN
     Indication: Desmoplastic small round cell tumour
     Dosage: 20 MILLIGRAM/SQ. METER
     Route: 065
  2. IRINOTECAN [Suspect]
     Active Substance: IRINOTECAN
     Indication: Disease progression
  3. IRINOTECAN [Suspect]
     Active Substance: IRINOTECAN
     Indication: Metastases to pleura
  4. IRINOTECAN [Suspect]
     Active Substance: IRINOTECAN
     Indication: Metastases to liver
  5. IRINOTECAN [Suspect]
     Active Substance: IRINOTECAN
     Indication: Metastases to lung
  6. IRINOTECAN [Suspect]
     Active Substance: IRINOTECAN
     Indication: Metastases to abdominal cavity
  7. YONDELIS [Suspect]
     Active Substance: TRABECTEDIN
     Indication: Desmoplastic small round cell tumour
     Dosage: 1.3 MILLIGRAM/SQ. METER 3 WEEKS (THIRD-LINE TREATEMENT)
     Route: 065
  8. YONDELIS [Suspect]
     Active Substance: TRABECTEDIN
     Indication: Metastases to abdominal cavity
  9. YONDELIS [Suspect]
     Active Substance: TRABECTEDIN
     Indication: Metastases to liver
  10. YONDELIS [Suspect]
     Active Substance: TRABECTEDIN
     Indication: Metastases to lung
  11. YONDELIS [Suspect]
     Active Substance: TRABECTEDIN
     Indication: Disease progression
  12. YONDELIS [Suspect]
     Active Substance: TRABECTEDIN
     Indication: Metastases to pleura
  13. ONDANSETRON [Concomitant]
     Active Substance: ONDANSETRON
     Indication: Prophylaxis
     Dosage: UNK
     Route: 048
  14. CEFIXIME [Concomitant]
     Active Substance: CEFIXIME
     Indication: Prophylaxis
     Dosage: 400 MILLIGRAM
     Route: 048

REACTIONS (7)
  - Haematotoxicity [Unknown]
  - Neutropenia [Unknown]
  - Thrombocytopenia [Unknown]
  - Anaemia [Unknown]
  - Diarrhoea [Unknown]
  - Fatigue [Unknown]
  - Transaminases increased [Unknown]
